FAERS Safety Report 5860372-8 (Version None)
Quarter: 2008Q3

REPORT INFORMATION
  Report Type: 
  Country: None (occurrence: None)
  Receive Date: 20080827
  Receipt Date: 20080122
  Transmission Date: 20090109
  Serious: No
  Sender: FDA-Public Use
  Company Number: US-ABBOTT-07P-163-0377069-00

PATIENT
  Sex: Male

DRUGS (4)
  1. NIASPAN [Suspect]
     Indication: BLOOD CHOLESTEROL
     Route: 048
  2. OLMESARTAN MEDOXOMIL [Concomitant]
     Indication: HYPERTENSION
  3. SUMATRIPTAN SUCCINATE [Concomitant]
     Indication: MIGRAINE
  4. CELECOXIB [Concomitant]
     Indication: ANTIINFLAMMATORY THERAPY

REACTIONS (1)
  - FLUSHING [None]
